FAERS Safety Report 4719174-8 (Version None)
Quarter: 2005Q3

REPORT INFORMATION
  Report Type: 
  Country: None (occurrence: None)
  Receive Date: 20050720
  Receipt Date: 20050630
  Transmission Date: 20060218
  Serious: Yes (Hospitalization)
  Sender: FDA-Public Use
  Company Number: DSA_26730_2005

PATIENT
  Age: 63 Year
  Sex: Female

DRUGS (13)
  1. TAVOR [Suspect]
     Dosage: 6 MG Q DAY PO
     Route: 048
     Dates: start: 20041021, end: 20041021
  2. TAVOR [Suspect]
     Dosage: 4 MG Q DAY PO
     Route: 048
     Dates: start: 20041016, end: 20041020
  3. TAVOR [Suspect]
     Dosage: 2 MG Q DAY PO
     Route: 048
     Dates: start: 20041023, end: 20041023
  4. TAVOR [Suspect]
     Dosage: 4 MG Q DAY PO
     Route: 048
     Dates: start: 20041024, end: 20041025
  5. TAVOR [Suspect]
     Dosage: 3 MG Q DAY PO
     Route: 048
     Dates: start: 20041026
  6. QUILONUM [Suspect]
     Dosage: 900 MG Q DAY PO
     Route: 048
  7. TEGRETOL [Suspect]
     Dosage: 600 MG Q DAY PO
     Route: 048
  8. ZYPREXA [Suspect]
     Dosage: 20 MG Q DAY PO
     Route: 048
     Dates: start: 20041021, end: 20041023
  9. ZYPREXA [Suspect]
     Dosage: 15 MG Q DAY PO
     Route: 048
     Dates: start: 20041024, end: 20041024
  10. ZYPREXA [Suspect]
     Dosage: 10 MG Q DAY PO
     Route: 048
     Dates: start: 20041025
  11. DIOVAN [Concomitant]
  12. NATRILIX [Concomitant]
  13. ACTRAPID HUMAN [Concomitant]

REACTIONS (4)
  - COORDINATION ABNORMAL [None]
  - DYSARTHRIA [None]
  - FALL [None]
  - SEDATION [None]
